FAERS Safety Report 7825407-1 (Version None)
Quarter: 2011Q3

REPORT INFORMATION
  Report Type: 
  Country: None (occurrence: None)
  Receive Date: 20110918
  Receipt Date: 20110907
  Transmission Date: 20111222
  Serious: Yes (Hospitalization)
  Sender: FDA-Public Use
  Company Number: 2011029740

PATIENT
  Age: 33 Year
  Sex: Female

DRUGS (6)
  1. NORETHINDRONE [Suspect]
     Dates: start: 20100922, end: 20100928
  2. DEXAMETHASONE [Concomitant]
  3. LANSOPRAZOLE [Suspect]
     Dates: start: 20100907, end: 20100928
  4. TRANEXAMIC ACID [Suspect]
     Dates: start: 20100922, end: 20100928
  5. PRIVIGEN [Suspect]
     Indication: IDIOPATHIC THROMBOCYTOPENIC PURPURA
     Dates: start: 20100922, end: 20100923
  6. RITUXIMAB (RITUXIMAB) [Suspect]
     Dates: start: 20100917, end: 20100924

REACTIONS (2)
  - PURPURA [None]
  - RASH MACULO-PAPULAR [None]
